FAERS Safety Report 4745766-6 (Version None)
Quarter: 2005Q3

REPORT INFORMATION
  Report Type: 
  Country: None (occurrence: None)
  Receive Date: 20050816
  Receipt Date: 20050404
  Transmission Date: 20060218
  Serious: Yes (Other)
  Sender: FDA-Public Use
  Company Number: PHEH2005US03950

PATIENT
  Age: 54 Year
  Sex: Female

DRUGS (16)
  1. ZOMETA [Suspect]
     Indication: MULTIPLE MYELOMA
     Dosage: 4MG EVERY 4-8 WEEKS
     Route: 042
     Dates: start: 20040601, end: 20050201
  2. NORVASC [Concomitant]
     Dosage: 10 MG, UNK
     Dates: start: 20040601
  3. LORTAB [Concomitant]
     Dosage: 7.5 MG, UNK
     Dates: start: 20040601
  4. LORTAB [Concomitant]
     Dosage: 500 MG, UNK
     Dates: start: 20040601
  5. FENTANYL [Concomitant]
     Dosage: 75 MEQ, UNK
     Route: 062
     Dates: start: 20040601
  6. COUMADIN [Concomitant]
     Route: 062
     Dates: start: 20040601
  7. EFFEXOR XR [Concomitant]
     Dosage: 75 MG, UNK
     Dates: start: 20040701
  8. EFFEXOR XR [Concomitant]
     Dosage: 150 MG, UNK
     Dates: start: 20040701
  9. PROTONIX [Concomitant]
     Dosage: 40 UNK, UNK
  10. ATIVAN [Concomitant]
     Dosage: 1 MG, UNK
     Dates: start: 20040601
  11. ATIVAN [Concomitant]
     Dosage: 2 MG, UNK
     Dates: start: 20040601
  12. ATIVAN [Concomitant]
     Dosage: 1 MG, UNK
     Dates: start: 20040601
  13. ATIVAN [Concomitant]
     Dosage: 2 MG, UNK
     Dates: start: 20040601
  14. DECADRON [Concomitant]
     Indication: MULTIPLE MYELOMA
     Dosage: 40 MG, QD
     Dates: start: 20040629, end: 20040703
  15. DECADRON [Concomitant]
     Dosage: 40 MG, QD
     Dates: start: 20040707, end: 20040710
  16. DECADRON [Concomitant]
     Dosage: CYCLE REPEATED MONTHLY FOR 5 CYCLES
     Dates: start: 20040714, end: 20040717

REACTIONS (1)
  - ASEPTIC NECROSIS BONE [None]
